FAERS Safety Report 14405423 (Version 1)
Quarter: 2018Q1

REPORT INFORMATION
  Report Type: Spontaneous
  Country: IT (occurrence: IT)
  Receive Date: 20180118
  Receipt Date: 20180118
  Transmission Date: 20180509
  Serious: Yes (Other)
  Sender: FDA-Public Use
  Company Number: IT-CIPLA LTD.-2018IT01165

PATIENT

DRUGS (6)
  1. GARDENALE 50 MG COMPRESSE [Suspect]
     Active Substance: PHENOBARBITAL
     Dosage: 25 MG, DAILY
     Route: 048
  2. OLANZEPINE [Concomitant]
     Active Substance: OLANZAPINE
     Dosage: 2.5 MG, DAILY
     Route: 065
  3. LAMOTRIGINE. [Suspect]
     Active Substance: LAMOTRIGINE
     Dosage: 250 MG, DAILY
     Route: 065
  4. DEPAKIN 5 00 MG COMPRESSE GASTRORESISTENTI [Suspect]
     Active Substance: VALPROATE SODIUM
     Dosage: 1.5 G, DAILY
     Route: 048
  5. LASIX [Concomitant]
     Active Substance: FUROSEMIDE
     Dosage: 25 MG, DAILY
     Route: 065
  6. TEGRETOL [Suspect]
     Active Substance: CARBAMAZEPINE
     Dosage: 20 ML, DAILY
     Route: 065

REACTIONS (2)
  - Pyrexia [Unknown]
  - Epilepsy [Unknown]

NARRATIVE: CASE EVENT DATE: 20171122
